FAERS Safety Report 9161890 (Version 3)
Quarter: 2013Q3

REPORT INFORMATION
  Report Type: Spontaneous
  Country: AU (occurrence: None)
  Receive Date: 20130221
  Receipt Date: 20130702
  Transmission Date: 20140515
  Serious: Yes (Hospitalization)
  Sender: FDA-Public Use
  Company Number: ACO_34307_2013

PATIENT
  Age: 60 Year
  Sex: Female

DRUGS (5)
  1. FAMPRIDINE [Suspect]
     Indication: MULTIPLE SCLEROSIS
     Route: 048
     Dates: start: 20120517
  2. CRESTOR (ROSUVASTATINE CALCIUM) [Concomitant]
  3. ENDEP (AMITRIPTYLINE HYDROCHLORIDE) [Concomitant]
  4. TEGRETOL (CARBAMAZEPINE) UNKNOWN [Concomitant]
  5. PANAMAX (PARACETAMOL) [Concomitant]

REACTIONS (2)
  - Decubitus ulcer [None]
  - Localised infection [None]
